FAERS Safety Report 24444134 (Version 2)
Quarter: 2024Q4

REPORT INFORMATION
  Report Type: Report from Study
  Country: US (occurrence: US)
  Receive Date: 20241016
  Receipt Date: 20241017
  Transmission Date: 20250114
  Serious: No
  Sender: ROCHE
  Company Number: US-ROCHE-2592470

PATIENT
  Age: 51 Year
  Sex: Female

DRUGS (4)
  1. RITUXAN [Suspect]
     Active Substance: RITUXIMAB
     Indication: Multiple sclerosis
     Dosage: INFUSE 1000 MG DAY 1 AND 15 INTRAVENOUSLY EVERY 4 MONTH(S)
     Route: 041
  2. RITUXAN [Suspect]
     Active Substance: RITUXIMAB
     Dosage: 2 VIAL
     Route: 042
  3. RITUXAN [Suspect]
     Active Substance: RITUXIMAB
     Route: 042
  4. RITUXAN [Suspect]
     Active Substance: RITUXIMAB
     Dosage: EVERY 4 MONTHS
     Route: 042

REACTIONS (3)
  - Off label use [Unknown]
  - No adverse event [Unknown]
  - Product prescribing error [Unknown]
